FAERS Safety Report 6011051-8 (Version None)
Quarter: 2008Q4

REPORT INFORMATION
  Report Type: 
  Country: None (occurrence: None)
  Receive Date: 20081216
  Receipt Date: 20081203
  Transmission Date: 20090506
  Serious: Yes (Hospitalization)
  Sender: FDA-Public Use
  Company Number: 236743J08USA

PATIENT
  Age: 65 Year
  Sex: Female
  Weight: 87 kg

DRUGS (9)
  1. REBIF [Suspect]
     Indication: MULTIPLE SCLEROSIS
     Dosage: 44 MCG, 3 IN 1 WEEKS, SUBCUTANEOUS
     Route: 058
     Dates: start: 20021122
  2. METOPROLOL (METOPROLOL /003769901/) [Concomitant]
  3. DYAZIDE [Concomitant]
  4. LEVOTHYROXINE (LEVOTHYROXINE /00068001/) [Concomitant]
  5. POTASSIUM (POTASSIUM /00031401/) [Concomitant]
  6. SIMVASTATIN [Concomitant]
  7. CHOLESTOFF (SITOSTEROL) [Concomitant]
  8. UNSPECIFIED ANTI-VIRAL MEDICATON (ANTIVIRAL NOS) [Concomitant]
  9. IBUPROFEN (IBURPOFEN) [Concomitant]

REACTIONS (4)
  - BONE NEOPLASM MALIGNANT [None]
  - DENTAL CARIES [None]
  - ORAL PAPILLOMA [None]
  - TOOTH DISORDER [None]
